FAERS Safety Report 8496137-0 (Version None)
Quarter: 2012Q3

REPORT INFORMATION
  Report Type: 
  Country: None (occurrence: None)
  Receive Date: 20120709
  Receipt Date: 20120625
  Transmission Date: 20120928
  Serious: Yes (Other)
  Sender: FDA-Public Use
  Company Number: FR-MYLANLABS-2012S1012996

PATIENT
  Age: 66 Year
  Sex: Male

DRUGS (1)
  1. LEVETIRACETAM [Suspect]
     Indication: HAEMANGIOMA
     Route: 049
     Dates: start: 20120407, end: 20120415

REACTIONS (7)
  - ABNORMAL BEHAVIOUR [None]
  - BALANCE DISORDER [None]
  - FATIGUE [None]
  - HEADACHE [None]
  - CONFUSIONAL STATE [None]
  - AMNESIA [None]
  - TREMOR [None]
